FAERS Safety Report 24961078 (Version 1)
Quarter: 2025Q1

REPORT INFORMATION
  Report Type: Spontaneous
  Country: US (occurrence: US)
  Receive Date: 20250212
  Receipt Date: 20250212
  Transmission Date: 20250408
  Serious: Yes (Other)
  Sender: ORGANON
  Company Number: US-ORGANON-O2502USA000722

PATIENT
  Age: 25 Year
  Sex: Female
  Weight: 65.76 kg

DRUGS (11)
  1. NEXPLANON [Suspect]
     Active Substance: ETONOGESTREL
     Indication: Contraception
     Route: 059
     Dates: start: 20200803
  2. NEXPLANON [Concomitant]
     Active Substance: ETONOGESTREL
     Indication: Contraception
     Route: 059
  3. JADENU [Concomitant]
     Active Substance: DEFERASIROX
  4. GABAPENTIN [Concomitant]
     Active Substance: GABAPENTIN
  5. HYDROMORPHONE [Concomitant]
     Active Substance: HYDROMORPHONE
  6. MIRALAX [Concomitant]
     Active Substance: POLYETHYLENE GLYCOL 3350
  7. SENNAE [Concomitant]
  8. TIZANIDINE [Concomitant]
     Active Substance: TIZANIDINE
  9. TRAZODONE [Concomitant]
     Active Substance: TRAZODONE HYDROCHLORIDE
  10. TYLENOL [Concomitant]
     Active Substance: ACETAMINOPHEN
  11. OXYCODONE [Concomitant]
     Active Substance: OXYCODONE

REACTIONS (3)
  - Ectopic pregnancy with contraceptive device [Unknown]
  - Unintended pregnancy [Unknown]
  - Incorrect product administration duration [Unknown]

NARRATIVE: CASE EVENT DATE: 20230803
